FAERS Safety Report 13522462 (Version 2)
Quarter: 2017Q2

REPORT INFORMATION
  Report Type: Spontaneous
  Country: US (occurrence: US)
  Receive Date: 20170508
  Receipt Date: 20170601
  Transmission Date: 20170830
  Serious: No
  Sender: FDA-Public Use
  Company Number: US-GLAXOSMITHKLINE-US2017066241

PATIENT
  Age: 47 Year
  Sex: Male
  Weight: 170.52 kg

DRUGS (8)
  1. HYDROCHLOROTHIAZIDE TABLET [Concomitant]
     Dosage: 1 DF, 1D
     Route: 048
  2. VENTOLIN HFA [Suspect]
     Active Substance: ALBUTEROL SULFATE
     Indication: ASTHMA LATE ONSET
     Dosage: 2 PUFF(S), BID
     Route: 055
     Dates: start: 20170407
  3. METOPROLOL TARTRATE TABLET [Concomitant]
     Dosage: 1 DF, 1D
     Route: 048
  4. AMLODIPINE BESYLATE TABLET [Concomitant]
     Active Substance: AMLODIPINE BESYLATE
     Dosage: 1 DF, 1D
  5. HUMAN CHORIONIC GONADOTROPIN POWDER FOR INJECTION [Concomitant]
     Dosage: 38 DF, BID
     Route: 042
  6. TESTOSTERONE CYPIONATE. [Concomitant]
     Active Substance: TESTOSTERONE CYPIONATE
     Dosage: 1 DF, WE
     Route: 042
  7. BENAZEPRIL TABLET [Concomitant]
     Dosage: 1 DF, 1D
     Route: 048
  8. ANASTROZOLE FILM-COATED TABLET [Concomitant]
     Dosage: 1 DF, 3 TIMES A WEEK
     Route: 048

REACTIONS (8)
  - Asthma [Unknown]
  - Dyspnoea [Unknown]
  - Smoke sensitivity [Unknown]
  - Peripheral swelling [Unknown]
  - Bronchospasm [Unknown]
  - Drug ineffective [Not Recovered/Not Resolved]
  - Tongue disorder [Unknown]
  - Oedema [Unknown]

NARRATIVE: CASE EVENT DATE: 201704
